FAERS Safety Report 16016341 (Version 1)
Quarter: 2019Q1

REPORT INFORMATION
  Report Type: Spontaneous
  Country: US (occurrence: US)
  Receive Date: 20190227
  Receipt Date: 20190227
  Transmission Date: 20190418
  Serious: Yes (Disabling, Other)
  Sender: FDA-Public Use
  Company Number: None

PATIENT
  Age: 10 Year
  Sex: Male
  Weight: 32.4 kg

DRUGS (1)
  1. TAMIFLU (GENERIC) [Suspect]
     Active Substance: OSELTAMIVIR PHOSPHATE
     Indication: INFLUENZA
     Route: 048
     Dates: start: 20190212, end: 20190213

REACTIONS (5)
  - Neuropsychiatric symptoms [None]
  - Headache [None]
  - Delusion [None]
  - Hallucination [None]
  - Fear [None]

NARRATIVE: CASE EVENT DATE: 20190213
